FAERS Safety Report 4583074-7 (Version None)
Quarter: 2005Q1

REPORT INFORMATION
  Report Type: 
  Country: None (occurrence: None)
  Receive Date: 20050125
  Receipt Date: 20041001
  Transmission Date: 20050727
  Serious: No
  Sender: FDA-Public Use
  Company Number: USA041079997

PATIENT
  Age: 80 Year
  Sex: Female

DRUGS (8)
  1. FORTEO [Suspect]
     Indication: OSTEOPOROSIS
     Dates: start: 20030701
  2. AZULFIDINE [Concomitant]
  3. ASPIRIN [Concomitant]
  4. VITAMINS [Concomitant]
  5. TUMS (CALCIUM CARBONATE) [Concomitant]
  6. ESTROGEN NOS [Concomitant]
  7. ACCUVITE [Concomitant]
  8. FOLIC ACID [Concomitant]

REACTIONS (4)
  - DERMATITIS CONTACT [None]
  - ERYTHEMA [None]
  - HOT FLUSH [None]
  - JOINT SWELLING [None]
